FAERS Safety Report 6260207-8 (Version None)
Quarter: 2009Q3

REPORT INFORMATION
  Report Type: 
  Country: None (occurrence: None)
  Receive Date: 20090708
  Receipt Date: 20090702
  Transmission Date: 20100115
  Serious: Yes (Other)
  Sender: FDA-Public Use
  Company Number: B0582084A

PATIENT
  Age: 63 Year
  Sex: Female

DRUGS (3)
  1. ADARTREL [Suspect]
     Indication: RESTLESS LEGS SYNDROME
     Route: 048
     Dates: start: 20090601
  2. LEVOTHYROX [Concomitant]
     Indication: THYROID DISORDER
     Route: 065
  3. MEDIATOR [Concomitant]
     Route: 065

REACTIONS (2)
  - INSOMNIA [None]
  - SUDDEN ONSET OF SLEEP [None]
